FAERS Safety Report 4339977-1 (Version None)
Quarter: 2004Q2

REPORT INFORMATION
  Report Type: 
  Country: None (occurrence: None)
  Receive Date: 20040415
  Receipt Date: 20040415
  Transmission Date: 20050107
  Serious: Yes (Other)
  Sender: FDA-Public Use
  Company Number: None

PATIENT
  Age: 65 Year
  Sex: Male
  Weight: 55.3388 kg

DRUGS (2)
  1. PRINIVIL [Suspect]
     Indication: HYPERTENSION
     Dosage: 10 MG ONCE DAY ORAL
     Route: 048
     Dates: start: 20000610, end: 20000616
  2. ZESTRIL [Concomitant]

REACTIONS (2)
  - PRURITUS [None]
  - RASH [None]
